FAERS Safety Report 25651553 (Version 1)
Quarter: 2025Q3

REPORT INFORMATION
  Report Type: Spontaneous
  Country: CN (occurrence: CN)
  Receive Date: 20250806
  Receipt Date: 20250806
  Transmission Date: 20251021
  Serious: Yes (Other)
  Sender: BAYER HEALTHCARE PHARMACEUTICALS INC.
  Company Number: CN-BAYER-2025A103423

PATIENT
  Age: 4 Year
  Sex: Male
  Weight: 45 kg

DRUGS (1)
  1. ULTRAVIST [Suspect]
     Active Substance: IOPROMIDE
     Indication: Computerised tomogram thorax
     Route: 042
     Dates: start: 20250713, end: 20250713

REACTIONS (4)
  - Bronchospasm [Recovering/Resolving]
  - Amaurosis [Recovering/Resolving]
  - Pruritus [Recovering/Resolving]
  - Blood pressure diastolic increased [Recovered/Resolved]

NARRATIVE: CASE EVENT DATE: 20250713
